FAERS Safety Report 7197489-4 (Version None)
Quarter: 2010Q4

REPORT INFORMATION
  Report Type: 
  Country: None (occurrence: None)
  Receive Date: 20101227
  Receipt Date: 20101214
  Transmission Date: 20110411
  Serious: Yes (Other)
  Sender: FDA-Public Use
  Company Number: US-ELI_LILLY_AND_COMPANY-US201009007089

PATIENT
  Sex: Female

DRUGS (14)
  1. FORTEO [Suspect]
     Indication: OSTEOPOROSIS
     Dosage: 20 UG, DAILY (1/D)
     Route: 058
     Dates: start: 20100716, end: 20100921
  2. CALCIUM [Concomitant]
  3. VITAMIN D [Concomitant]
  4. MICARDIS [Concomitant]
  5. FUROSEMIDE [Concomitant]
  6. ASPIRIN [Concomitant]
  7. FISH OIL [Concomitant]
     Dosage: 1 TABLET, DAILY (1/D)
  8. ICAPS [Concomitant]
     Dosage: 1 TABLET, DAILY (1/D)
  9. NORCO [Concomitant]
     Dosage: 10/325 MG, 1/2 TO 2 TABLETS EVERY 4 TO 6 HOURS
     Route: 048
  10. OSTEO BI-FLEX [Concomitant]
     Dosage: 2 TABLETS, DAILY (1/D)
  11. AUGMENTIN '125' [Concomitant]
     Dosage: 500/125 MG, UNKNOWN
  12. IRON [Concomitant]
  13. TYLENOL (CAPLET) [Concomitant]
  14. PERCOCET [Concomitant]

REACTIONS (4)
  - HAEMORRHAGE [None]
  - MALIGNANT FIBROUS HISTIOCYTOMA [None]
  - METASTASES TO LUNG [None]
  - RADIATION SKIN INJURY [None]
